FAERS Safety Report 20422039 (Version 1)
Quarter: 2022Q1

REPORT INFORMATION
  Report Type: Spontaneous
  Country: US (occurrence: None)
  Receive Date: 20220203
  Receipt Date: 20220203
  Transmission Date: 20220423
  Serious: No
  Sender: FDA-Public Use
  Company Number: None

PATIENT
  Age: 61 Year
  Sex: Female
  Weight: 70.31 kg

DRUGS (8)
  1. TYMLOS [Suspect]
     Active Substance: ABALOPARATIDE
     Indication: Osteoporosis
     Dosage: FREQUENCY : DAILY;?
     Dates: end: 20220126
  2. ESTRADIOL [Concomitant]
     Active Substance: ESTRADIOL
  3. ALLEGRA [Concomitant]
     Active Substance: FEXOFENADINE HYDROCHLORIDE
  4. CALCIUM CITRATE [Concomitant]
     Active Substance: CALCIUM CITRATE
  5. VITAMIN D [Concomitant]
     Active Substance: VITAMIN D NOS
  6. CHONDROITIN SULFATE A\GLUCOSAMINE [Concomitant]
     Active Substance: CHONDROITIN SULFATE A\GLUCOSAMINE
  7. MAGNESIUM [Concomitant]
     Active Substance: MAGNESIUM
  8. VITAMIN B [Concomitant]
     Active Substance: VITAMIN B

REACTIONS (5)
  - Headache [None]
  - Pain in jaw [None]
  - Drug ineffective [None]
  - Bone pain [None]
  - Therapy cessation [None]

NARRATIVE: CASE EVENT DATE: 20220125
